FAERS Safety Report 6309310-4 (Version None)
Quarter: 2009Q3

REPORT INFORMATION
  Report Type: 
  Country: None (occurrence: None)
  Receive Date: 20090814
  Receipt Date: 20070521
  Transmission Date: 20100115
  Serious: Yes (Hospitalization, Other)
  Sender: FDA-Public Use
  Company Number: US-ASTRAZENECA-2006UW12248

PATIENT
  Age: 43 Year
  Sex: Female

DRUGS (23)
  1. SEROQUEL [Suspect]
     Indication: DEPRESSION
     Dosage: 100MG TO 400MG
     Route: 048
     Dates: start: 20000101, end: 20050101
  2. SEROQUEL [Suspect]
     Indication: BIPOLAR DISORDER
     Dosage: 100MG TO 400MG
     Route: 048
     Dates: start: 20000101, end: 20050101
  3. SEROQUEL [Suspect]
     Indication: INSOMNIA
     Dosage: 100MG TO 400MG
     Route: 048
     Dates: start: 20000101, end: 20050101
  4. SEROQUEL [Suspect]
     Indication: SLEEP DISORDER
     Dosage: 100MG TO 400MG
     Route: 048
     Dates: start: 20000101, end: 20050101
  5. SEROQUEL [Suspect]
     Dosage: 200 MG TO 1200 MG
     Route: 048
     Dates: start: 20000101, end: 20040101
  6. SEROQUEL [Suspect]
     Dosage: 200 MG TO 1200 MG
     Route: 048
     Dates: start: 20000101, end: 20040101
  7. SEROQUEL [Suspect]
     Dosage: 200 MG TO 1200 MG
     Route: 048
     Dates: start: 20000101, end: 20040101
  8. SEROQUEL [Suspect]
     Dosage: 200 MG TO 1200 MG
     Route: 048
     Dates: start: 20000101, end: 20040101
  9. SEROQUEL [Suspect]
     Dosage: 50-400 MG
     Route: 048
     Dates: start: 20020628
  10. SEROQUEL [Suspect]
     Dosage: 50-400 MG
     Route: 048
     Dates: start: 20020628
  11. SEROQUEL [Suspect]
     Dosage: 50-400 MG
     Route: 048
     Dates: start: 20020628
  12. SEROQUEL [Suspect]
     Dosage: 50-400 MG
     Route: 048
     Dates: start: 20020628
  13. ZYPREXA [Concomitant]
     Indication: HALLUCINATION, AUDITORY
     Dates: start: 20020628
  14. KLONOPIN [Concomitant]
     Indication: ANXIETY
     Route: 048
     Dates: start: 20020705
  15. NEURONTIN [Concomitant]
     Dates: start: 20021017
  16. HUMULIN R [Concomitant]
     Dosage: 20 UNITS QPM, 25 UNITS QAM
     Dates: start: 20040514
  17. AVANDIA [Concomitant]
     Dates: start: 20040514
  18. GLUCOPHAGE [Concomitant]
     Dates: start: 20040514
  19. ASPIRIN [Concomitant]
     Dates: start: 20040514
  20. PLAVIX [Concomitant]
     Dosage: 75 MG, DAILY ,PRN
     Dates: start: 20040514
  21. ATENOLOL [Concomitant]
     Dates: start: 20040514
  22. LORTAB [Concomitant]
     Indication: SPINAL OSTEOARTHRITIS
     Dosage: 4 TIMES A DAY
     Dates: start: 20020705
  23. XANAX [Concomitant]
     Dates: start: 19940811

REACTIONS (6)
  - ACUTE CORONARY SYNDROME [None]
  - ARTERIOSCLEROSIS CORONARY ARTERY [None]
  - DIABETES MELLITUS [None]
  - MYOCARDIAL INFARCTION [None]
  - TYPE 1 DIABETES MELLITUS [None]
  - TYPE 2 DIABETES MELLITUS [None]
